FAERS Safety Report 12252066 (Version 2)
Quarter: 2016Q2

REPORT INFORMATION
  Report Type: Report from Study
  Country: US (occurrence: US)
  Receive Date: 20160411
  Receipt Date: 20160425
  Transmission Date: 20160815
  Serious: Yes (Hospitalization)
  Sender: FDA-Public Use
  Company Number: US-UNITED THERAPEUTICS-UNT-2016-005302

PATIENT
  Age: 9 Year
  Sex: Male
  Weight: 57.5 kg

DRUGS (9)
  1. DILAUDID [Suspect]
     Active Substance: HYDROMORPHONE HYDROCHLORIDE
     Indication: ANALGESIC INTERVENTION SUPPORTIVE THERAPY
  2. CETIRIZINE [Concomitant]
     Active Substance: CETIRIZINE HYDROCHLORIDE
     Indication: PRODUCT USED FOR UNKNOWN INDICATION
  3. GABAPENTIN. [Suspect]
     Active Substance: GABAPENTIN
     Indication: PRODUCT USED FOR UNKNOWN INDICATION
  4. GM-CSF [Suspect]
     Active Substance: GRANULOCYTE-MACROPHAGE COLONY-STIMULATING FACTOR
     Indication: OSTEOSARCOMA RECURRENT
     Dosage: 2645 ?G
     Dates: start: 20160325, end: 20160331
  5. DIPHENHYDRAMINE. [Suspect]
     Active Substance: DIPHENHYDRAMINE
     Indication: PRODUCT USED FOR UNKNOWN INDICATION
  6. LEUKINE [Suspect]
     Active Substance: SARGRAMOSTIM
     Indication: OSTEOSARCOMA RECURRENT
     Dosage: 2645 ?G
     Dates: start: 20160325, end: 20160331
  7. ONDANSETRON [Concomitant]
     Active Substance: ONDANSETRON
     Indication: PRODUCT USED FOR UNKNOWN INDICATION
  8. CH14.18 [Suspect]
     Active Substance: DINUTUXIMAB
     Indication: OSTEOSARCOMA RECURRENT
     Dosage: 15 ML/HR STARTING ON 30 MAR 2016 AT 1250 AND ENDING ON 31 MAR 2016 AT 0750 (CYCLE 1)
     Route: 041
     Dates: start: 20160328, end: 20160331
  9. ACETAMINOPHEN. [Concomitant]
     Active Substance: ACETAMINOPHEN
     Indication: PRODUCT USED FOR UNKNOWN INDICATION

REACTIONS (5)
  - Hypersensitivity [Unknown]
  - Hallucination [Recovered/Resolved]
  - Pupillary reflex impaired [Not Recovered/Not Resolved]
  - Photophobia [Not Recovered/Not Resolved]
  - Mydriasis [Not Recovered/Not Resolved]

NARRATIVE: CASE EVENT DATE: 20160329
